FAERS Safety Report 4737010-0 (Version None)
Quarter: 2005Q3

REPORT INFORMATION
  Report Type: 
  Country: None (occurrence: None)
  Receive Date: 20050802
  Receipt Date: 20050728
  Transmission Date: 20060218
  Serious: Yes (Hospitalization, Other)
  Sender: FDA-Public Use
  Company Number: 200511044BWH

PATIENT
  Sex: Female
  Weight: 67.1324 kg

DRUGS (6)
  1. AVELOX [Suspect]
     Indication: ASTHMA
     Dosage: 400 MG, QD, ORAL
     Route: 048
     Dates: start: 20030916, end: 20030917
  2. AVELOX [Suspect]
     Indication: BRONCHITIS
     Dosage: 400 MG, QD, ORAL
     Route: 048
     Dates: start: 20030916, end: 20030917
  3. NEXIUM [Concomitant]
  4. PREVACID [Concomitant]
  5. PREMARINA [Concomitant]
  6. ALBUTEROL [Concomitant]

REACTIONS (20)
  - ANAPHYLACTIC REACTION [None]
  - ATRIOVENTRICULAR BLOCK FIRST DEGREE [None]
  - BLEPHAROSPASM [None]
  - BRONCHOSPASM [None]
  - CEREBRAL DISORDER [None]
  - COUGH [None]
  - EYE PRURITUS [None]
  - EYE SWELLING [None]
  - INSOMNIA [None]
  - NAIL DISCOLOURATION [None]
  - NAUSEA [None]
  - NERVOUSNESS [None]
  - OCULAR HYPERAEMIA [None]
  - PALPITATIONS [None]
  - PULMONARY VALVE INCOMPETENCE [None]
  - SWELLING FACE [None]
  - TREMOR [None]
  - TRICUSPID VALVE INCOMPETENCE [None]
  - URTICARIA [None]
  - VOMITING [None]
